FAERS Safety Report 4579156-6 (Version None)
Quarter: 2005Q1

REPORT INFORMATION
  Report Type: 
  Country: None (occurrence: None)
  Receive Date: 20050207
  Receipt Date: 20050207
  Transmission Date: 20050727
  Serious: Yes (Hospitalization)
  Sender: FDA-Public Use
  Company Number: None

PATIENT
  Sex: Female
  Weight: 32.659 kg

DRUGS (2)
  1. GENOTROPIN [Suspect]
     Indication: DWARFISM
     Dosage: 1 MG SQ QD
     Route: 058
     Dates: start: 20040921, end: 20050201
  2. DESFERAL W/ HYDROCORTIS [Concomitant]

REACTIONS (2)
  - GAIT DISTURBANCE [None]
  - HIP SURGERY [None]
